FAERS Safety Report 7345235-3 (Version None)
Quarter: 2011Q1

REPORT INFORMATION
  Report Type: 
  Country: None (occurrence: None)
  Receive Date: 20110310
  Receipt Date: 20110307
  Transmission Date: 20110831
  Serious: Yes (Death)
  Sender: FDA-Public Use
  Company Number: US-ACTELION-A-US2011-45973

PATIENT

DRUGS (2)
  1. DIURETICS [Concomitant]
  2. VELETRI [Suspect]
     Indication: PULMONARY ARTERIAL HYPERTENSION
     Dosage: 7 UG/KG, PER MIN
     Route: 042
     Dates: start: 20110211, end: 20110304

REACTIONS (1)
  - DEATH [None]
